FAERS Safety Report 12325004 (Version 2)
Quarter: 2016Q2

REPORT INFORMATION
  Report Type: Report from Study
  Country: MX (occurrence: MX)
  Receive Date: 20160502
  Receipt Date: 20160601
  Transmission Date: 20160815
  Serious: Yes (Hospitalization, Disabling)
  Sender: FDA-Public Use
  Company Number: PHHY2016MX058975

PATIENT
  Sex: Female

DRUGS (1)
  1. STALEVO [Suspect]
     Active Substance: CARBIDOPA\ENTACAPONE\LEVODOPA
     Indication: PRODUCT USED FOR UNKNOWN INDICATION
     Dosage: 50 MG OF LEVODOPA, 12.5 MG OF CARBIDOPA AND 200 MG OF ENTACAPONE
     Route: 065

REACTIONS (12)
  - Eating disorder [Unknown]
  - Malaise [Unknown]
  - Eye disorder [Unknown]
  - Head titubation [Unknown]
  - Speech disorder [Unknown]
  - Gait disturbance [Unknown]
  - Tremor [Unknown]
  - Cerebral thrombosis [Unknown]
  - Swelling [Unknown]
  - Movement disorder [Unknown]
  - Fluid retention [Unknown]
  - Apallic syndrome [Unknown]
